FAERS Safety Report 7147901-1 (Version None)
Quarter: 2010Q4

REPORT INFORMATION
  Report Type: 
  Country: None (occurrence: None)
  Receive Date: 20101206
  Receipt Date: 20101206
  Transmission Date: 20110411
  Serious: Yes (Other)
  Sender: FDA-Public Use
  Company Number: None

PATIENT
  Sex: Female
  Weight: 68.0396 kg

DRUGS (2)
  1. OXYCONTIN [Suspect]
     Indication: ARTHRITIS
     Dosage: 40 MG 3 A DAY PO
     Route: 048
     Dates: start: 20101115, end: 20101203
  2. OXYCONTIN [Suspect]
     Indication: BACK DISORDER
     Dosage: 40 MG 3 A DAY PO
     Route: 048
     Dates: start: 20101115, end: 20101203

REACTIONS (11)
  - ABDOMINAL DISCOMFORT [None]
  - CONDITION AGGRAVATED [None]
  - DRUG INEFFECTIVE [None]
  - HEADACHE [None]
  - HYPERHIDROSIS [None]
  - INFLUENZA LIKE ILLNESS [None]
  - MOBILITY DECREASED [None]
  - NAUSEA [None]
  - PAIN [None]
  - VOMITING [None]
  - WITHDRAWAL SYNDROME [None]
